FAERS Safety Report 10637609 (Version 1)
Quarter: 2014Q4

REPORT INFORMATION
  Report Type: Spontaneous
  Country: US (occurrence: US)
  Receive Date: 20141208
  Receipt Date: 20141208
  Transmission Date: 20150529
  Serious: No
  Sender: FDA-Public Use
  Company Number: US-GLAXOSMITHKLINE-A1087679A

PATIENT

DRUGS (6)
  1. BREO ELLIPTA [Suspect]
     Active Substance: FLUTICASONE FUROATE\VILANTEROL TRIFENATATE
     Indication: CHRONIC OBSTRUCTIVE PULMONARY DISEASE
     Route: 055
     Dates: start: 20140815
  2. OXYGEN. [Concomitant]
     Active Substance: OXYGEN
  3. ALBUTEROL INHALER [Concomitant]
     Active Substance: ALBUTEROL
  4. NEBULIZER [Concomitant]
     Active Substance: UNSPECIFIED INGREDIENT
  5. NASONEX [Concomitant]
     Active Substance: MOMETASONE FUROATE
  6. SPIRIVA [Concomitant]
     Active Substance: TIOTROPIUM BROMIDE MONOHYDRATE

REACTIONS (4)
  - Hyperventilation [Unknown]
  - Drug ineffective [Unknown]
  - Anxiety [Unknown]
  - Dyspnoea [Not Recovered/Not Resolved]

NARRATIVE: CASE EVENT DATE: 2014
